FAERS Safety Report 6636371-5 (Version None)
Quarter: 2010Q1

REPORT INFORMATION
  Report Type: 
  Country: None (occurrence: None)
  Receive Date: 20100316
  Receipt Date: 20100301
  Transmission Date: 20100710
  Serious: Yes (Hospitalization)
  Sender: FDA-Public Use
  Company Number: US-ROCHE-690878

PATIENT
  Sex: Female

DRUGS (3)
  1. BEVACIZUMAB [Suspect]
     Indication: OVARIAN EPITHELIAL CANCER
     Dosage: OVER 30-90 MIN ON DAY 1 BEGINNING WITH CYCLE 2 AND OF CYCLES 7-22.
     Route: 042
     Dates: start: 20091215
  2. PACLITAXEL [Suspect]
     Indication: OVARIAN EPITHELIAL CANCER
     Dosage: DOSE: 135 MG/ M2 OVER 3 HOURS ON DAY ONE, INTRAVENOUSLY AND 60MG/ M2 ON DAY 8 I.P FROM CYCLES 1-6.
     Route: 042
     Dates: start: 20091215
  3. CISPLATIN [Suspect]
     Indication: OVARIAN EPITHELIAL CANCER
     Dosage: FREQUENCY: ON DAY 2 FOR CYCLES 1-6.
     Route: 033

REACTIONS (5)
  - BLOOD MAGNESIUM DECREASED [None]
  - BLOOD POTASSIUM DECREASED [None]
  - HAEMOGLOBIN DECREASED [None]
  - PYREXIA [None]
  - URINARY TRACT INFECTION [None]
